FAERS Safety Report 4596799-4 (Version None)
Quarter: 2005Q1

REPORT INFORMATION
  Report Type: 
  Country: None (occurrence: None)
  Receive Date: 20050302
  Receipt Date: 20050119
  Transmission Date: 20050727
  Serious: Yes (Hospitalization, Other)
  Sender: FDA-Public Use
  Company Number: US-AMGEN-US102104

PATIENT
  Sex: Male
  Weight: 89 kg

DRUGS (6)
  1. EPOGEN [Suspect]
     Indication: DIALYSIS
     Route: 042
     Dates: start: 20040821, end: 20050101
  2. ATENOLOL [Concomitant]
     Route: 048
  3. PREVACID [Concomitant]
     Route: 048
  4. NORVASC [Concomitant]
     Route: 048
  5. ZAROXOLYN [Concomitant]
     Route: 048
  6. NPH INSULIN [Concomitant]
     Route: 058

REACTIONS (3)
  - DRUG INEFFECTIVE [None]
  - LOCALISED INFECTION [None]
  - SIDEROBLASTIC ANAEMIA [None]
